FAERS Safety Report 17448586 (Version 2)
Quarter: 2020Q1

REPORT INFORMATION
  Report Type: Spontaneous
  Country: US (occurrence: US)
  Receive Date: 20200224
  Receipt Date: 20200317
  Transmission Date: 20200409
  Serious: Yes (Other)
  Sender: FDA-Public Use
  Company Number: US-ROCHE-2551492

PATIENT
  Age: 37 Year
  Sex: Female
  Weight: 66.28 kg

DRUGS (2)
  1. CELLCEPT [Suspect]
     Active Substance: MYCOPHENOLATE MOFETIL\MYCOPHENOLATE MOFETIL HYDROCHLORIDE
     Indication: SYSTEMIC LUPUS ERYTHEMATOSUS
     Route: 048
     Dates: start: 20070401, end: 20190930
  2. GABAPENTIN. [Concomitant]
     Active Substance: GABAPENTIN

REACTIONS (9)
  - Hyperaesthesia [Recovered/Resolved]
  - Weight increased [Not Recovered/Not Resolved]
  - Pain in extremity [Recovered/Resolved]
  - Nerve compression [Recovered/Resolved]
  - Hypoaesthesia [Recovered/Resolved]
  - Systemic lupus erythematosus [Unknown]
  - Pruritus [Recovering/Resolving]
  - Off label use [Unknown]
  - Hyperhidrosis [Recovering/Resolving]

NARRATIVE: CASE EVENT DATE: 201906
